FAERS Safety Report 5331744-5 (Version None)
Quarter: 2007Q2

REPORT INFORMATION
  Report Type: 
  Country: None (occurrence: None)
  Receive Date: 20070517
  Receipt Date: 20070511
  Transmission Date: 20071010
  Serious: Yes (Hospitalization)
  Sender: FDA-Public Use
  Company Number: 0604-231

PATIENT
  Sex: Female

DRUGS (1)
  1. DUONEB [Suspect]
     Dosage: QID-INH
     Route: 055

REACTIONS (6)
  - ANXIETY [None]
  - GINGIVAL PAIN [None]
  - HEADACHE [None]
  - NERVOUSNESS [None]
  - PNEUMONIA [None]
  - TREMOR [None]
